FAERS Safety Report 6379094-2 (Version None)
Quarter: 2009Q3

REPORT INFORMATION
  Report Type: 
  Country: None (occurrence: None)
  Receive Date: 20090923
  Receipt Date: 20090923
  Transmission Date: 20100115
  Serious: Yes (Life-Threatening, Hospitalization)
  Sender: FDA-Public Use
  Company Number: None

PATIENT
  Sex: Male
  Weight: 98 kg

DRUGS (2)
  1. METOPROLOL TARTRATE [Suspect]
     Indication: HYPERTENSION
     Dosage: 25MG PO BID
     Route: 048
     Dates: start: 20070501, end: 20090501
  2. VALSARTAN [Suspect]
     Indication: HYPERTENSION
     Dosage: 320MG PO DAILY
     Route: 048
     Dates: start: 20070501, end: 20090501

REACTIONS (2)
  - INCORRECT DOSE ADMINISTERED [None]
  - RENAL FAILURE ACUTE [None]
